FAERS Safety Report 10718218 (Version 1)
Quarter: 2015Q1

REPORT INFORMATION
  Report Type: Spontaneous
  Country: US (occurrence: US)
  Receive Date: 20150118
  Receipt Date: 20150118
  Transmission Date: 20150721
  Serious: Yes (Hospitalization, Other)
  Sender: FDA-Public Use
  Company Number: US-AMGEN-USASP2015003007

PATIENT
  Age: 75 Year
  Sex: Male

DRUGS (1)
  1. ENBREL [Suspect]
     Active Substance: ETANERCEPT
     Indication: RHEUMATOID ARTHRITIS
     Dosage: 25 MG, 2 TIMES/WK
     Route: 065
     Dates: start: 20090422, end: 201401

REACTIONS (8)
  - Implantable defibrillator insertion [Recovered/Resolved]
  - Limb discomfort [Recovered/Resolved]
  - Chest discomfort [Unknown]
  - Coronary artery occlusion [Unknown]
  - Right ventricular failure [Unknown]
  - Heart sounds abnormal [Unknown]
  - Ejection fraction decreased [Unknown]
  - Cardiac pacemaker replacement [Recovered/Resolved]

NARRATIVE: CASE EVENT DATE: 2014
